FAERS Safety Report 14937085 (Version 1)
Quarter: 2018Q2

REPORT INFORMATION
  Report Type: Spontaneous
  Country: GB (occurrence: GB)
  Receive Date: 20180525
  Receipt Date: 20180525
  Transmission Date: 20180711
  Serious: Yes (Other)
  Sender: FDA-Public Use
  Company Number: GB-TEVA-2018-GB-897667

PATIENT
  Age: 45 Year
  Sex: Male
  Weight: 86 kg

DRUGS (2)
  1. LAMOTRIGINE. [Suspect]
     Active Substance: LAMOTRIGINE
     Dosage: 100 MILLIGRAM DAILY; INCREASED.
     Dates: start: 20180317
  2. LAMOTRIGINE. [Suspect]
     Active Substance: LAMOTRIGINE
     Dosage: INCREASED TO 50MG .
     Dates: start: 20180306, end: 20180316

REACTIONS (4)
  - Pruritus [Unknown]
  - Eye swelling [Unknown]
  - Erythema [Unknown]
  - Dermatitis bullous [Unknown]

NARRATIVE: CASE EVENT DATE: 20180319
